FAERS Safety Report 5375844-2 (Version None)
Quarter: 2007Q3

REPORT INFORMATION
  Report Type: 
  Country: None (occurrence: None)
  Receive Date: 20070702
  Receipt Date: 20070622
  Transmission Date: 20080115
  Serious: Yes (Hospitalization, Other)
  Sender: FDA-Public Use
  Company Number: PHEH2007US09165

PATIENT
  Age: 62 Year
  Sex: Female
  Weight: 99.773 kg

DRUGS (11)
  1. ESTRADERM [Suspect]
     Route: 062
     Dates: start: 19890101
  2. STEROIDS NOS [Concomitant]
     Indication: MULTIPLE SCLEROSIS
     Dosage: REPORTED AS HIGH DOSE
  3. OXYGEN THERAPY [Concomitant]
     Indication: HYPOXIA
  4. PREMARIN [Suspect]
     Dosage: 0.625 UNK, UNK
     Route: 048
     Dates: start: 19890101
  5. PREMPRO [Suspect]
     Indication: MENOPAUSE
     Dates: start: 19990401, end: 20020401
  6. PROVERA [Suspect]
     Dosage: 10 MG, UNK
     Dates: start: 19890101
  7. ESTRATEST [Suspect]
     Dates: start: 19900101, end: 19990101
  8. CYCRIN [Suspect]
     Dates: start: 19990101
  9. ESTRACE [Suspect]
     Dosage: UNK, QHS
     Dates: start: 19990101
  10. LOTREL [Concomitant]
     Indication: HYPERTENSION
     Dosage: 5-20 MG
  11. CARDIZEM [Concomitant]
     Indication: HYPERTENSION
     Dosage: 240 MG, UNK

REACTIONS (21)
  - ABSCESS DRAINAGE [None]
  - ANAL FISSURE [None]
  - APPENDICITIS [None]
  - BENIGN BREAST NEOPLASM [None]
  - BLOOD CHOLESTEROL INCREASED [None]
  - BREAST CANCER [None]
  - BREAST HYPERPLASIA [None]
  - BREAST MICROCALCIFICATION [None]
  - COLONOSCOPY ABNORMAL [None]
  - FIBROCYSTIC BREAST DISEASE [None]
  - HAEMATOCHEZIA [None]
  - HYSTERECTOMY [None]
  - INTERVERTEBRAL DISC DISORDER [None]
  - MALIGNANT BREAST LUMP REMOVAL [None]
  - MAMMOGRAM ABNORMAL [None]
  - MASTITIS [None]
  - POLYP COLORECTAL [None]
  - POSTMENOPAUSAL HAEMORRHAGE [None]
  - RADIOTHERAPY [None]
  - TONSILLECTOMY [None]
  - UTERINE DILATION AND CURETTAGE [None]
